FAERS Safety Report 15250151 (Version 1)
Quarter: 2018Q3

REPORT INFORMATION
  Report Type: Spontaneous
  Country: US (occurrence: US)
  Receive Date: 20180807
  Receipt Date: 20180807
  Transmission Date: 20181010
  Serious: Yes (Death, Other)
  Sender: FDA-Public Use
  Company Number: US-ROCHE-2165949

PATIENT
  Age: 71 Year
  Sex: Female

DRUGS (2)
  1. ALTEPLASE. [Suspect]
     Active Substance: ALTEPLASE
     Dosage: 90% GIVEN AS INFUSION ;ONGOING: NO, FOR 1 HOUR
     Route: 042
     Dates: start: 20180801, end: 201808
  2. ALTEPLASE. [Suspect]
     Active Substance: ALTEPLASE
     Indication: PRODUCT USED FOR UNKNOWN INDICATION
     Dosage: 10% GIVEN AS BOLUS ;ONGOING: NO
     Route: 040
     Dates: start: 20180801, end: 20180801

REACTIONS (2)
  - Cardiac arrest [Fatal]
  - Disseminated intravascular coagulation [Unknown]

NARRATIVE: CASE EVENT DATE: 201808
